FAERS Safety Report 8221763-3 (Version None)
Quarter: 2012Q1

REPORT INFORMATION
  Report Type: 
  Country: None (occurrence: None)
  Receive Date: 20120320
  Receipt Date: 20120320
  Transmission Date: 20120608
  Serious: Yes (Hospitalization)
  Sender: FDA-Public Use
  Company Number: None

PATIENT
  Age: 61 Year
  Sex: Male
  Weight: 84.821 kg

DRUGS (1)
  1. DIVALPROEX SODIUM [Suspect]
     Indication: AFFECTIVE DISORDER
     Dosage: 2000 MG QAM + 1500 MG QHS
     Route: 048
     Dates: start: 20110921, end: 20120118

REACTIONS (9)
  - SEDATION [None]
  - GAIT DISTURBANCE [None]
  - AMMONIA INCREASED [None]
  - DEPRESSED LEVEL OF CONSCIOUSNESS [None]
  - COLITIS [None]
  - DIZZINESS [None]
  - ILEUS [None]
  - PAIN [None]
  - MENTAL STATUS CHANGES [None]
